FAERS Safety Report 5921884-1 (Version None)
Quarter: 2008Q4

REPORT INFORMATION
  Report Type: 
  Country: None (occurrence: None)
  Receive Date: 20081017
  Receipt Date: 20081006
  Transmission Date: 20090506
  Serious: Yes (Other)
  Sender: FDA-Public Use
  Company Number: US-AMGEN-QUU311628

PATIENT
  Sex: Female

DRUGS (2)
  1. ENBREL [Suspect]
     Indication: RHEUMATOID ARTHRITIS
     Route: 058
     Dates: start: 20080115
  2. METHOTREXATE [Concomitant]
     Route: 048

REACTIONS (5)
  - ABNORMAL DREAMS [None]
  - FATIGUE [None]
  - IMPAIRED HEALING [None]
  - ORAL HERPES [None]
  - PRECANCEROUS SKIN LESION [None]
